FAERS Safety Report 13108513 (Version 1)
Quarter: 2017Q1

REPORT INFORMATION
  Report Type: Spontaneous
  Country: US (occurrence: US)
  Receive Date: 20170111
  Receipt Date: 20170111
  Transmission Date: 20170428
  Serious: No
  Sender: FDA-Public Use
  Company Number: None

PATIENT
  Sex: Female

DRUGS (4)
  1. ADRIAMYCIN [Suspect]
     Active Substance: DOXORUBICIN HYDROCHLORIDE
  2. CYTOXAN [Suspect]
     Active Substance: CYCLOPHOSPHAMIDE
     Indication: BREAST CANCER
  3. ANASTRAZOLE [Suspect]
     Active Substance: ANASTROZOLE
  4. TAMOXIFEN [Suspect]
     Active Substance: TAMOXIFEN

REACTIONS (2)
  - Invasive papillary breast carcinoma [None]
  - Breast cancer metastatic [None]
